FAERS Safety Report 6285321-2 (Version None)
Quarter: 2009Q4

REPORT INFORMATION
  Report Type: 
  Country: None (occurrence: None)
  Receive Date: 20090723
  Receipt Date: 20090714
  Transmission Date: 20100525
  Serious: Yes (Hospitalization)
  Sender: FDA-Public Use
  Company Number: GXKR2009TW07999

PATIENT
  Age: 33 Year
  Sex: Male

DRUGS (2)
  1. METHADONE HCL [Suspect]
     Indication: DRUG DEPENDENCE
     Dosage: 150 MG/DAY
  2. HEROIN (DIAMORPHINE) [Suspect]
     Dosage: INTRAVENOUS

REACTIONS (10)
  - CEREBRAL HAEMATOMA [None]
  - COGNITIVE DISORDER [None]
  - DRUG TOXICITY [None]
  - DYSPNOEA [None]
  - HAEMODIALYSIS [None]
  - ISCHAEMIC STROKE [None]
  - LOSS OF CONSCIOUSNESS [None]
  - METABOLIC ACIDOSIS [None]
  - PUPILLARY REFLEX IMPAIRED [None]
  - RHABDOMYOLYSIS [None]
